FAERS Safety Report 16021112 (Version 1)
Quarter: 2019Q2

REPORT INFORMATION
  Report Type: Spontaneous
  Country: US (occurrence: US)
  Receive Date: 20190228
  Receipt Date: 20190228
  Transmission Date: 20190711
  Serious: Yes (Other)
  Sender: FDA-Public Use
  Company Number: None

PATIENT
  Age: 39 Year
  Sex: Male
  Weight: 201.6 kg

DRUGS (2)
  1. BUPRENORPHINE -NALOXONE TABLET [Concomitant]
     Active Substance: BUPRENORPHINE\NALOXONE
     Dates: start: 20181031, end: 20190228
  2. BUPRENORPHINE-NALOXONE SUBLINGUAL TABLETS [Suspect]
     Active Substance: BUPRENORPHINE HYDROCHLORIDE\NALOXONE HYDROCHLORIDE
     Indication: DRUG DEPENDENCE
     Route: 060
     Dates: start: 20181031, end: 20190228

REACTIONS (3)
  - Nausea [None]
  - Product taste abnormal [None]
  - Decreased appetite [None]

NARRATIVE: CASE EVENT DATE: 20190130
